FAERS Safety Report 8389728-9 (Version None)
Quarter: 2012Q2

REPORT INFORMATION
  Report Type: 
  Country: None (occurrence: None)
  Receive Date: 20120524
  Receipt Date: 20120524
  Transmission Date: 20120825
  Serious: Yes (Hospitalization)
  Sender: FDA-Public Use
  Company Number: None

PATIENT
  Sex: Female
  Weight: 64 kg

DRUGS (3)
  1. TAXOL [Suspect]
     Dosage: 960 MG IV
     Route: 042
     Dates: start: 20120508
  2. CARBOPLATIN [Suspect]
     Dosage: 540 MG IV
     Route: 042
     Dates: start: 20120508
  3. AVASTIN [Suspect]
     Dosage: 35 MG IV
     Route: 042
     Dates: start: 20120508

REACTIONS (2)
  - DIARRHOEA [None]
  - CONSTIPATION [None]
